FAERS Safety Report 5851278-9 (Version None)
Quarter: 2008Q3

REPORT INFORMATION
  Report Type: 
  Country: None (occurrence: None)
  Receive Date: 20080731
  Receipt Date: 20080416
  Transmission Date: 20090109
  Serious: No
  Sender: FDA-Public Use
  Company Number: US200804002348

PATIENT
  Age: 66 Year
  Sex: Female
  Weight: 82.5 kg

DRUGS (6)
  1. BYETTA [Suspect]
     Indication: TYPE 2 DIABETES MELLITUS
     Dosage: 5 UG, 2/D, SUBCUTANEOUS : 10 UG, 2/D, SUBCUTANEOUS
     Route: 058
     Dates: start: 20080407, end: 20080414
  2. BYETTA [Suspect]
     Indication: TYPE 2 DIABETES MELLITUS
     Dosage: 5 UG, 2/D, SUBCUTANEOUS : 10 UG, 2/D, SUBCUTANEOUS
     Route: 058
     Dates: start: 20080415
  3. GLIPIZIDE [Concomitant]
  4. LANTUS [Concomitant]
  5. PREMARIN (ESTROGENS CONJUGATED, MEDROGESTONE) [Concomitant]
  6. MEDROXYPROGESTERONOE (MEDROXYPROGESTERONE) [Concomitant]

REACTIONS (9)
  - ABDOMINAL PAIN UPPER [None]
  - BLOOD GLUCOSE INCREASED [None]
  - DISTURBANCE IN ATTENTION [None]
  - DRUG INEFFECTIVE [None]
  - GASTROOESOPHAGEAL REFLUX DISEASE [None]
  - HIATUS HERNIA [None]
  - MALAISE [None]
  - OESOPHAGEAL PAIN [None]
  - WEIGHT DECREASED [None]
